FAERS Safety Report 15712301 (Version 1)
Quarter: 2018Q4

REPORT INFORMATION
  Report Type: Report from Study
  Country: None (occurrence: GB)
  Receive Date: 20181212
  Receipt Date: 20181212
  Transmission Date: 20190205
  Serious: Yes (Other)
  Sender: FDA-Public Use
  Company Number: GB-ABBVIE-18K-167-2584404-00

PATIENT
  Sex: Female

DRUGS (1)
  1. HUMIRA [Suspect]
     Active Substance: ADALIMUMAB
     Indication: PSORIATIC ARTHROPATHY
     Route: 058
     Dates: start: 201803

REACTIONS (3)
  - Skin ulcer [Not Recovered/Not Resolved]
  - Memory impairment [Not Recovered/Not Resolved]
  - Brain injury [Not Recovered/Not Resolved]

NARRATIVE: CASE EVENT DATE: 2018
